FAERS Safety Report 6535770-X (Version None)
Quarter: 2010Q1

REPORT INFORMATION
  Report Type: 
  Country: None (occurrence: None)
  Receive Date: 20100113
  Receipt Date: 20100105
  Transmission Date: 20100710
  Serious: Yes (Other)
  Sender: FDA-Public Use
  Company Number: JP-BAYER-201010898GPV

PATIENT
  Age: 61 Year
  Sex: Female

DRUGS (2)
  1. ASPIRIN [Suspect]
     Indication: CARDIAC FAILURE CHRONIC
  2. GADOLINIUM DIETHYLENETRIAMINOPENTAACETIC ACID [Concomitant]
     Indication: NUCLEAR MAGNETIC RESONANCE IMAGING
     Route: 042

REACTIONS (5)
  - DEAFNESS UNILATERAL [None]
  - EAR CONGESTION [None]
  - HAEMORRHAGE [None]
  - INNER EAR DISORDER [None]
  - VERTIGO [None]
